FAERS Safety Report 7262617-9 (Version None)
Quarter: 2011Q1

REPORT INFORMATION
  Report Type: 
  Country: None (occurrence: None)
  Receive Date: 20110130
  Receipt Date: 20100903
  Transmission Date: 20110831
  Serious: No
  Sender: FDA-Public Use
  Company Number: US-ABBOTT-10P-163-0665187-00

PATIENT
  Sex: Male
  Weight: 133.93 kg

DRUGS (7)
  1. HUMIRA [Suspect]
     Indication: PSORIASIS
     Dates: start: 20100601
  2. BENAZAPRIL [Concomitant]
     Indication: HYPERTENSION
  3. FISH OIL [Concomitant]
     Indication: SUPPLEMENTATION THERAPY
  4. AMLODIPINE [Concomitant]
     Indication: HYPERTENSION
  5. ZOLPIDEM [Concomitant]
     Indication: SLEEP DISORDER THERAPY
  6. EPIPEN [Concomitant]
     Indication: HYPERSENSITIVITY
  7. FENOFIBRATE [Concomitant]
     Indication: HYPERLIPIDAEMIA

REACTIONS (3)
  - INJECTION SITE SWELLING [None]
  - DEVICE MALFUNCTION [None]
  - INJECTION SITE PAIN [None]
